FAERS Safety Report 16030584 (Version 3)
Quarter: 2019Q2

REPORT INFORMATION
  Report Type: Spontaneous
  Country: US (occurrence: US)
  Receive Date: 20190304
  Receipt Date: 20190412
  Transmission Date: 20190711
  Serious: No
  Sender: FDA-Public Use
  Company Number: US-PFIZER INC-2019080952

PATIENT
  Age: 68 Year
  Sex: Female
  Weight: 67 kg

DRUGS (4)
  1. LETROZOLE. [Concomitant]
     Active Substance: LETROZOLE
     Dosage: UNK
     Dates: start: 20190107
  2. IBRANCE [Suspect]
     Active Substance: PALBOCICLIB
     Dosage: 75 MG, 1X/DAY
     Dates: start: 20190318
  3. IBRANCE [Suspect]
     Active Substance: PALBOCICLIB
     Indication: BREAST CANCER METASTATIC
     Dosage: 125 MG, 1X/DAY
     Dates: start: 20190101, end: 20190130
  4. IBRANCE [Suspect]
     Active Substance: PALBOCICLIB
     Dosage: 100 MG, 1X/DAY
     Dates: end: 20190101

REACTIONS (12)
  - Fatigue [Not Recovered/Not Resolved]
  - Constipation [Recovered/Resolved]
  - Stomatitis [Recovered/Resolved]
  - Condition aggravated [Not Recovered/Not Resolved]
  - Abdominal pain upper [Unknown]
  - Insomnia [Not Recovered/Not Resolved]
  - Nausea [Unknown]
  - Glossodynia [Unknown]
  - Feeding disorder [Unknown]
  - Epistaxis [Recovered/Resolved]
  - Platelet count decreased [Unknown]
  - Full blood count decreased [Not Recovered/Not Resolved]

NARRATIVE: CASE EVENT DATE: 2019
